FAERS Safety Report 14950775 (Version 1)
Quarter: 2018Q2

REPORT INFORMATION
  Report Type: Spontaneous
  Country: IT (occurrence: IT)
  Receive Date: 20180530
  Receipt Date: 20180530
  Transmission Date: 20180711
  Serious: Yes (Other)
  Sender: FDA-Public Use
  Company Number: IT-ACCORD-039989

PATIENT
  Age: 68 Year
  Sex: Male
  Weight: 82 kg

DRUGS (3)
  1. IRINOTECAN [Suspect]
     Active Substance: IRINOTECAN
     Indication: COLON CANCER
     Dosage: ALSO RECEIVED 350 MG FROM 25-FEB-2016
     Route: 042
     Dates: start: 20160225, end: 20160331
  2. ERBITUX [Concomitant]
     Active Substance: CETUXIMAB
     Dosage: STRENGTH: 5 MG/ML?RECEIVED ERBUTIX AT 780 MG FROM 25-FEB-2016 TO 21-APR-2016.
     Route: 042
  3. FLUOROURACIL. [Suspect]
     Active Substance: FLUOROURACIL
     Indication: COLON CANCER
     Dosage: PATIENT ALSO RECEIVED FLUOROURACIL AT DOSE OF 780 MG I.V. BOLUS
     Route: 041
     Dates: start: 20160225, end: 20160331

REACTIONS (4)
  - Thrombocytopenia [Recovering/Resolving]
  - Neutropenia [Recovered/Resolved]
  - Asthenia [Recovered/Resolved]
  - Leukopenia [Not Recovered/Not Resolved]

NARRATIVE: CASE EVENT DATE: 20160324
